FAERS Safety Report 17932284 (Version 1)
Quarter: 2020Q2

REPORT INFORMATION
  Report Type: Spontaneous
  Country: DE (occurrence: DE)
  Receive Date: 20200624
  Receipt Date: 20200624
  Transmission Date: 20200714
  Serious: Yes (Hospitalization)
  Sender: FDA-Public Use
  Company Number: DE-TEVA-2020-DE-1789952

PATIENT
  Age: 83 Year
  Sex: Female

DRUGS (8)
  1. OSELTAMIVIR [Suspect]
     Active Substance: OSELTAMIVIR
     Dosage: 1500 MILLIGRAM DAILY; 1-0-1-0
     Route: 048
  2. LEVOTHYROXIN-NATRIUM [Concomitant]
     Active Substance: LEVOTHYROXINE SODIUM
     Dosage: 75 MICROGRAM DAILY; 1-0-0-0
     Route: 048
  3. RAMIPRIL. [Concomitant]
     Active Substance: RAMIPRIL
     Dosage: 10 MILLIGRAM DAILY; 1-0-1-0
     Route: 048
  4. SAXAGLIPTIN [Suspect]
     Active Substance: SAXAGLIPTIN
     Dosage: 2.5 MILLIGRAM DAILY; 1-0-0-0
     Route: 048
  5. ACARBOSE. [Concomitant]
     Active Substance: ACARBOSE
     Dosage: 50 MILLIGRAM DAILY; 1-0-0-0
     Route: 048
  6. RISPERIDON [Concomitant]
     Active Substance: RISPERIDONE
     Dosage: .5 MILLIGRAM DAILY;  0-0-1-0
     Route: 048
  7. SIMVASTATIN. [Concomitant]
     Active Substance: SIMVASTATIN
     Dosage: 40 MILLIGRAM DAILY; 0-0-1-0
     Route: 048
  8. MIRTAZAPIN [Concomitant]
     Active Substance: MIRTAZAPINE
     Dosage: 15 MILLIGRAM DAILY;  0-0-1-0,
     Route: 048

REACTIONS (9)
  - Pyrexia [Unknown]
  - Confusional state [Unknown]
  - Product prescribing error [Unknown]
  - General physical health deterioration [Unknown]
  - Fatigue [Unknown]
  - Condition aggravated [Unknown]
  - Hyperglycaemia [Unknown]
  - Electrolyte imbalance [Unknown]
  - Dehydration [Unknown]
